FAERS Safety Report 8363660-9 (Version None)
Quarter: 2012Q2

REPORT INFORMATION
  Report Type: 
  Country: None (occurrence: None)
  Receive Date: 20120516
  Receipt Date: 20120507
  Transmission Date: 20120825
  Serious: Yes (Hospitalization, Other)
  Sender: FDA-Public Use
  Company Number: JP-JNJFOC-20120511697

PATIENT
  Sex: Female
  Weight: 75 kg

DRUGS (10)
  1. INVEGA [Suspect]
     Indication: SCHIZOPHRENIA, PARANOID TYPE
     Route: 048
     Dates: start: 20111208
  2. ZYPREXA [Concomitant]
     Route: 048
     Dates: start: 20111201
  3. NITRAZEPAM [Concomitant]
     Route: 048
     Dates: start: 20111116, end: 20111130
  4. NITRAZEPAM [Concomitant]
     Indication: SCHIZOPHRENIA, PARANOID TYPE
     Route: 048
     Dates: start: 20111201
  5. INVEGA [Suspect]
     Route: 048
     Dates: start: 20111031, end: 20111207
  6. ZYPREXA [Concomitant]
     Indication: SCHIZOPHRENIA, PARANOID TYPE
     Route: 048
     Dates: start: 20111116, end: 20111119
  7. AMOBAN [Concomitant]
     Indication: SCHIZOPHRENIA, PARANOID TYPE
     Route: 048
     Dates: start: 20110412
  8. ZYPREXA [Concomitant]
     Route: 048
     Dates: start: 20111120, end: 20111130
  9. LASOPRAZOLE [Concomitant]
     Indication: GASTROOESOPHAGEAL REFLUX DISEASE
     Route: 048
  10. ENALAPRIL MALEATE [Concomitant]
     Indication: HYPERTENSION
     Route: 048

REACTIONS (3)
  - SOMNOLENCE [None]
  - HOSPITALISATION [None]
  - MALAISE [None]
